FAERS Safety Report 9828424 (Version 2)
Quarter: 2014Q1

REPORT INFORMATION
  Report Type: Spontaneous
  Country: CN (occurrence: CN)
  Receive Date: 20140117
  Receipt Date: 20140303
  Transmission Date: 20141002
  Serious: Yes (Other)
  Sender: FDA-Public Use
  Company Number: CN-ABBVIE-14P-035-1190041-00

PATIENT
  Age: 13 Year
  Sex: Female

DRUGS (1)
  1. DEPAKINE CHRONO [Suspect]
     Indication: EPILEPSY
     Dosage: EXTENDED RELEASE
     Route: 048
     Dates: start: 20130712

REACTIONS (5)
  - Foaming at mouth [Recovered/Resolved]
  - Epilepsy [Recovered/Resolved]
  - Eye movement disorder [Recovered/Resolved]
  - Musculoskeletal stiffness [Recovered/Resolved]
  - Drug ineffective [Unknown]
